FAERS Safety Report 24236000 (Version 1)
Quarter: 2024Q3

REPORT INFORMATION
  Report Type: Spontaneous
  Country: GB (occurrence: GB)
  Receive Date: 20240822
  Receipt Date: 20240822
  Transmission Date: 20241017
  Serious: Yes (Death, Other)
  Sender: BRISTOL MYERS SQUIBB
  Company Number: GB-BRISTOL-MYERS SQUIBB COMPANY-2024-132547

PATIENT
  Age: 83 Year
  Sex: Male

DRUGS (7)
  1. LENALIDOMIDE [Suspect]
     Active Substance: LENALIDOMIDE
     Indication: Product used for unknown indication
     Dosage: 2.5 MG, QD, (DAILY FOR 21 DAYS AND THEN 7 DAYS REST, 21 RAN)
     Route: 048
  2. LENALIDOMIDE [Suspect]
     Active Substance: LENALIDOMIDE
     Dosage: 21 RAN) (STRENGTH: 5 MG)
     Route: 048
  3. LENALIDOMIDE [Suspect]
     Active Substance: LENALIDOMIDE
     Dosage: FOR 21 DAYS
     Route: 048
  4. CLODRONATE DISODIUM [Suspect]
     Active Substance: CLODRONATE DISODIUM
     Indication: Product used for unknown indication
     Route: 048
  5. FILGRASTIM [Concomitant]
     Active Substance: FILGRASTIM
     Indication: Product used for unknown indication
     Dosage: UNK, (STRENGTH AND DOSE 30MIU/0.5ML)
  6. FILGRASTIM [Concomitant]
     Active Substance: FILGRASTIM
     Dosage: 5UG
  7. FILGRASTIM [Concomitant]
     Active Substance: FILGRASTIM
     Dosage: 5 MCD

REACTIONS (1)
  - Death [Fatal]
